FAERS Safety Report 13362424 (Version 1)
Quarter: 2017Q1

REPORT INFORMATION
  Report Type: Spontaneous
  Country: US (occurrence: US)
  Receive Date: 20170323
  Receipt Date: 20170323
  Transmission Date: 20170429
  Serious: Yes (Hospitalization, Other)
  Sender: FDA-Public Use
  Company Number: US-BRISTOL-MYERS SQUIBB COMPANY-BMS-2017-024145

PATIENT
  Age: 30 Year
  Sex: Female

DRUGS (2)
  1. ARISTADA [Suspect]
     Active Substance: ARIPIPRAZOLE LAUROXIL
     Indication: BIPOLAR DISORDER
     Dosage: 660 MG, UNK
     Route: 065
  2. ABILIFY [Suspect]
     Active Substance: ARIPIPRAZOLE
     Indication: BIPOLAR DISORDER
     Dosage: UNK
     Route: 048

REACTIONS (9)
  - Delirium [Not Recovered/Not Resolved]
  - Feeling abnormal [Unknown]
  - Somnolence [Unknown]
  - Hallucination [Unknown]
  - Miosis [Unknown]
  - Prescribed overdose [Unknown]
  - Hyperhidrosis [Unknown]
  - Dysarthria [Unknown]
  - Heart rate increased [Unknown]
